FAERS Safety Report 9222165 (Version 1)
Quarter: 2013Q1

REPORT INFORMATION
  Report Type: Spontaneous
  Country: US (occurrence: None)
  Receive Date: 20120914
  Receipt Date: 20120914
  Transmission Date: 20140127
  Serious: Yes (Other)
  Sender: FDA-Public Use
  Company Number: JPI-P-020262

PATIENT
  Age: 41 Year
  Sex: Female
  Weight: 51.26 kg

DRUGS (3)
  1. XYREM (500 MILLIGRAM/MILLILITERS, SOLUTION) (SODIUM OXYBATE) [Suspect]
     Indication: SOMNOLENCE
     Route: 048
     Dates: start: 200602
  2. BUPROFION HYDROCHLORIDE [Concomitant]
  3. BIRTH CONTROL PILL [Concomitant]

REACTIONS (2)
  - Hypertension [None]
  - Chest pain [None]
